FAERS Safety Report 15213506 (Version 1)
Quarter: 2018Q3

REPORT INFORMATION
  Report Type: Spontaneous
  Country: US (occurrence: US)
  Receive Date: 20180730
  Receipt Date: 20180730
  Transmission Date: 20181010
  Serious: Yes (Death, Hospitalization)
  Sender: FDA-Public Use
  Company Number: US-BAYER-2018-136025

PATIENT
  Age: 80 Year
  Sex: Male
  Weight: 72.7 kg

DRUGS (4)
  1. XARELTO [Suspect]
     Active Substance: RIVAROXABAN
     Indication: ATRIAL FIBRILLATION
  2. XARELTO [Suspect]
     Active Substance: RIVAROXABAN
     Indication: CEREBROVASCULAR ACCIDENT PROPHYLAXIS
  3. XARELTO [Suspect]
     Active Substance: RIVAROXABAN
     Indication: DEEP VEIN THROMBOSIS
     Dosage: UNK
     Route: 048
     Dates: start: 20130524, end: 20170701
  4. BAYER ASPIRIN [Suspect]
     Active Substance: ASPIRIN
     Indication: PRODUCT USED FOR UNKNOWN INDICATION
     Dosage: 81 MG, QD
     Route: 048
     Dates: end: 201506

REACTIONS (7)
  - Ischaemic stroke [Recovering/Resolving]
  - Epistaxis [Recovering/Resolving]
  - Respiratory failure [Fatal]
  - Inappropriate schedule of drug administration [Unknown]
  - Off label use [Unknown]
  - Rectal haemorrhage [None]
  - Haematemesis [Recovering/Resolving]

NARRATIVE: CASE EVENT DATE: 20140306
